FAERS Safety Report 13167144 (Version 1)
Quarter: 2017Q1

REPORT INFORMATION
  Report Type: Spontaneous
  Country: JP (occurrence: JP)
  Receive Date: 20170131
  Receipt Date: 20170131
  Transmission Date: 20170428
  Serious: Yes (Other)
  Sender: FDA-Public Use
  Company Number: JP-PFIZER INC-2017039413

PATIENT
  Age: 68 Year
  Sex: Male
  Weight: 68 kg

DRUGS (26)
  1. CAMPTO [Suspect]
     Active Substance: IRINOTECAN
     Dosage: UNK
     Dates: start: 20140224, end: 20140224
  2. CAMPTO [Suspect]
     Active Substance: IRINOTECAN
     Dosage: 300 MG, 1X/DAY
     Route: 041
     Dates: start: 20140324, end: 20140324
  3. ELPLAT [Suspect]
     Active Substance: OXALIPLATIN
     Indication: PANCREATIC CARCINOMA
     Dosage: 150 MG, 1X/DAY
     Route: 041
     Dates: start: 20140114, end: 20140114
  4. ELPLAT [Suspect]
     Active Substance: OXALIPLATIN
     Dosage: 148 MG, 1X/DAY
     Route: 041
     Dates: start: 20140324, end: 20140324
  5. LEVOFOLINATE [Suspect]
     Active Substance: LEVOLEUCOVORIN CALCIUM
     Indication: PANCREATIC CARCINOMA
     Dosage: 350 MG, 1X/DAY
     Route: 041
     Dates: start: 20140114, end: 20140114
  6. LEVOFOLINATE [Suspect]
     Active Substance: LEVOLEUCOVORIN CALCIUM
     Dosage: 350 MG, 1X/DAY
     Route: 041
     Dates: start: 20140127, end: 20140127
  7. CAMPTO [Suspect]
     Active Substance: IRINOTECAN
     Dosage: 300 MG, 1X/DAY
     Route: 041
     Dates: start: 20140127, end: 20140127
  8. CAMPTO [Suspect]
     Active Substance: IRINOTECAN
     Dosage: 300 MG, 1X/DAY
     Route: 041
     Dates: start: 20140210, end: 20140210
  9. CAMPTO [Suspect]
     Active Substance: IRINOTECAN
     Dosage: 300 MG, 1X/DAY
     Route: 041
     Dates: start: 20140407, end: 20140407
  10. CAMPTO [Suspect]
     Active Substance: IRINOTECAN
     Dosage: 350 MG, 1X/DAY
     Route: 041
     Dates: start: 20140421, end: 20140421
  11. ELPLAT [Suspect]
     Active Substance: OXALIPLATIN
     Dosage: 148 MG, 1X/DAY
     Route: 041
     Dates: start: 20140224, end: 20140224
  12. LEVOFOLINATE [Suspect]
     Active Substance: LEVOLEUCOVORIN CALCIUM
     Dosage: 350 MG, 1X/DAY
     Route: 041
     Dates: start: 20140324, end: 20140324
  13. CAMPTO [Suspect]
     Active Substance: IRINOTECAN
     Dosage: 300 MG, 1X/DAY
     Route: 041
     Dates: start: 20140310, end: 20140310
  14. ELPLAT [Suspect]
     Active Substance: OXALIPLATIN
     Dosage: 148 MG, 1X/DAY
     Route: 041
     Dates: start: 20140114, end: 20140114
  15. ELPLAT [Suspect]
     Active Substance: OXALIPLATIN
     Dosage: UNK
     Dates: start: 20140210, end: 20140210
  16. ELPLAT [Suspect]
     Active Substance: OXALIPLATIN
     Dosage: 148 MG, 1X/DAY
     Route: 041
     Dates: start: 20140407, end: 20140407
  17. 5-FU /00098801/ [Concomitant]
     Active Substance: FLUOROURACIL
     Dosage: 700 MG/BODY
     Dates: start: 20140114, end: 20140421
  18. ELPLAT [Suspect]
     Active Substance: OXALIPLATIN
     Dosage: 148 MG, 1X/DAY
     Route: 041
     Dates: start: 20140310, end: 20140310
  19. LEVOFOLINATE [Suspect]
     Active Substance: LEVOLEUCOVORIN CALCIUM
     Dosage: 350 MG, 1X/DAY
     Route: 041
     Dates: start: 20140310, end: 20140310
  20. CAMPTO [Suspect]
     Active Substance: IRINOTECAN
     Indication: PANCREATIC CARCINOMA
     Dosage: 300 MG, 1X/DAY
     Route: 041
     Dates: start: 20140114, end: 20140114
  21. LEVOFOLINATE [Suspect]
     Active Substance: LEVOLEUCOVORIN CALCIUM
     Dosage: 350 MG, 1X/DAY
     Route: 041
     Dates: start: 20140210, end: 20140210
  22. ELPLAT [Suspect]
     Active Substance: OXALIPLATIN
     Dosage: 148 MG, 1X/DAY
     Route: 041
     Dates: start: 20140127, end: 20140127
  23. LEVOFOLINATE [Suspect]
     Active Substance: LEVOLEUCOVORIN CALCIUM
     Dosage: 350 UNK, UNK
     Route: 041
     Dates: start: 20140224, end: 20140224
  24. LEVOFOLINATE [Suspect]
     Active Substance: LEVOLEUCOVORIN CALCIUM
     Dosage: 350 MG, 1X/DAY
     Route: 041
     Dates: start: 20140407, end: 20140407
  25. LEVOFOLINATE [Suspect]
     Active Substance: LEVOLEUCOVORIN CALCIUM
     Dosage: 350 MG, 1X/DAY
     Route: 041
     Dates: start: 20140421, end: 20140421
  26. ELPLAT [Suspect]
     Active Substance: OXALIPLATIN
     Dosage: UNK
     Dates: start: 20140421, end: 20140421

REACTIONS (7)
  - Hyperglycaemia [Unknown]
  - Decreased appetite [Recovered/Resolved]
  - Neoplasm progression [Unknown]
  - Fatigue [Recovered/Resolved]
  - Nausea [Recovered/Resolved]
  - Diarrhoea [Recovered/Resolved]
  - Stomatitis [Recovered/Resolved]

NARRATIVE: CASE EVENT DATE: 20140117
